FAERS Safety Report 8449380-0 (Version None)
Quarter: 2012Q2

REPORT INFORMATION
  Report Type: 
  Country: None (occurrence: None)
  Receive Date: 20120619
  Receipt Date: 20120611
  Transmission Date: 20120825
  Serious: Yes (Hospitalization, Disabling, Other)
  Sender: FDA-Public Use
  Company Number: BR-ROCHE-1059795

PATIENT
  Sex: Female

DRUGS (11)
  1. SINGULAIR [Concomitant]
  2. RABEPRAZOLE SODIUM [Concomitant]
  3. BUDESONIDE [Suspect]
     Indication: CHRONIC OBSTRUCTIVE PULMONARY DISEASE
     Dosage: 12/400 MCG 60/60 (FUMARATE/BUDESONIDE)
     Dates: end: 20120424
  4. LONAZOLAC CALCIUM [Concomitant]
  5. SIMVACOR [Concomitant]
  6. XOLAIR [Suspect]
     Indication: DYSPNOEA
     Route: 058
  7. BAMIFIX [Concomitant]
  8. FLUTICASONE PROPIONATE/SALMETEROL [Concomitant]
  9. CORTISONE ACETATE [Concomitant]
  10. INDAPEN [Concomitant]
  11. SPIRIVA [Concomitant]

REACTIONS (13)
  - PULMONARY CONGESTION [None]
  - TREATMENT NONCOMPLIANCE [None]
  - FIBROMYALGIA [None]
  - LUNG INFECTION [None]
  - PNEUMOTHORAX [None]
  - ASTHMA [None]
  - FALL [None]
  - GAIT DISTURBANCE [None]
  - MIGRAINE [None]
  - ANKLE FRACTURE [None]
  - DIVERTICULITIS [None]
  - LOWER LIMB FRACTURE [None]
  - PAIN [None]
